FAERS Safety Report 7138154-9 (Version None)
Quarter: 2010Q4

REPORT INFORMATION
  Report Type: 
  Country: None (occurrence: None)
  Receive Date: 20101206
  Receipt Date: 20101125
  Transmission Date: 20110411
  Serious: Yes (Life-Threatening, Hospitalization)
  Sender: FDA-Public Use
  Company Number: DE-BAXTER-2010BH027528

PATIENT
  Age: 59 Year
  Sex: Male
  Weight: 73 kg

DRUGS (21)
  1. GAMMAGARD LIQUID [Suspect]
     Indication: PLASMAPHERESIS
     Route: 042
     Dates: start: 20101022, end: 20101023
  2. CYCLOPHOSPHAMIDE [Concomitant]
  3. ILOMEDIN [Concomitant]
     Route: 055
     Dates: start: 20100803
  4. LIQUEMINE [Concomitant]
  5. HEPARIN [Concomitant]
  6. CLINDAMYCIN HYDROCHLORIDE [Concomitant]
  7. CIPRO [Concomitant]
  8. ASPIRIN [Concomitant]
  9. NORVASC [Concomitant]
  10. DISALUNIL [Concomitant]
  11. DECORTIN-H [Concomitant]
  12. BOSENTAN [Concomitant]
  13. SILDENAFIL [Concomitant]
  14. PENTOXIFYLLINE [Concomitant]
  15. PANTOZOL [Concomitant]
  16. RIOPAN [Concomitant]
  17. ACETYLCYSTEINE [Concomitant]
  18. KALINOR [Concomitant]
  19. ZOPICLONE [Concomitant]
  20. COLECALCIFEROL [Concomitant]
  21. CALCIUM [Concomitant]

REACTIONS (1)
  - RESPIRATORY FAILURE [None]
